FAERS Safety Report 8417089-5 (Version None)
Quarter: 2012Q2

REPORT INFORMATION
  Report Type: 
  Country: None (occurrence: None)
  Receive Date: 20120606
  Receipt Date: 20120529
  Transmission Date: 20120825
  Serious: Yes (Other)
  Sender: FDA-Public Use
  Company Number: US-US-EMD SERONO, INC.-7130538

PATIENT
  Sex: Female

DRUGS (7)
  1. GABAPENTIN [Concomitant]
     Indication: PAIN
  2. ZYRTEC [Concomitant]
     Indication: HYPERSENSITIVITY
  3. LEXAPRO [Concomitant]
     Indication: DEPRESSION
  4. REBIF [Suspect]
     Indication: MULTIPLE SCLEROSIS
     Route: 058
     Dates: start: 20020401
  5. CALCIUM [Concomitant]
     Indication: SUPPLEMENTATION THERAPY
  6. AMBIEN [Concomitant]
     Indication: INSOMNIA
  7. GABAPENTIN [Concomitant]

REACTIONS (2)
  - COELIAC DISEASE [None]
  - INJECTION SITE PAIN [None]
